FAERS Safety Report 5637640-8 (Version None)
Quarter: 2008Q1

REPORT INFORMATION
  Report Type: 
  Country: None (occurrence: None)
  Receive Date: 20080219
  Receipt Date: 20080204
  Transmission Date: 20080703
  Serious: Yes (Death)
  Sender: FDA-Public Use
  Company Number: 2008-01242

PATIENT
  Age: 24 Year
  Sex: Female

DRUGS (5)
  1. PENTAZOCINE + NALOXONE (WATSON LABORATORIES)(NALOXONE HYDROCHLORIDE 0. [Suspect]
  2. HEROIN(DIAMORPHINE) [Suspect]
  3. COCAINE(COCAINE) [Suspect]
  4. ETHANOL(ETHANOL) [Suspect]
  5. BUPRENORPHINE HCL [Suspect]

REACTIONS (1)
  - CARDIO-RESPIRATORY ARREST [None]
